FAERS Safety Report 16555973 (Version 3)
Quarter: 2020Q4

REPORT INFORMATION
  Report Type: Spontaneous
  Country: US (occurrence: US)
  Receive Date: 20190710
  Receipt Date: 20201028
  Transmission Date: 20210113
  Serious: Yes (Other)
  Sender: FDA-Public Use
  Company Number: US-PFIZER INC-2019289372

PATIENT
  Age: 48 Year
  Sex: Male
  Weight: 136 kg

DRUGS (1)
  1. PHENYTOIN. [Suspect]
     Active Substance: PHENYTOIN
     Dosage: UNK

REACTIONS (2)
  - Drug ineffective [Unknown]
  - Seizure [Unknown]

NARRATIVE: CASE EVENT DATE: 2010
